FAERS Safety Report 25648971 (Version 1)
Quarter: 2025Q3

REPORT INFORMATION
  Report Type: Spontaneous
  Country: EU (occurrence: EU)
  Receive Date: 20250806
  Receipt Date: 20250806
  Transmission Date: 20251021
  Serious: Yes (Other)
  Sender: MSN LABORATORIES PRIVATE LIMITED
  Company Number: EU-MLMSERVICE-20240202-4809744-2

PATIENT

DRUGS (6)
  1. THIOTEPA [Suspect]
     Active Substance: THIOTEPA
     Indication: Drug therapy
     Route: 065
     Dates: start: 2022
  2. FLUDARABINE [Suspect]
     Active Substance: FLUDARABINE PHOSPHATE
     Indication: Drug therapy
     Route: 065
     Dates: start: 2022
  3. BUSULFAN [Suspect]
     Active Substance: BUSULFAN
     Indication: Drug therapy
     Route: 065
     Dates: start: 2022
  4. CYCLOSPORINE [Suspect]
     Active Substance: CYCLOSPORINE
     Indication: Drug therapy
     Route: 065
     Dates: start: 2022
  5. MYCOPHENOLATE MOFETIL [Suspect]
     Active Substance: MYCOPHENOLATE MOFETIL
     Indication: Drug therapy
     Route: 065
     Dates: start: 2022
  6. CYCLOPHOSPHAMIDE [Suspect]
     Active Substance: CYCLOPHOSPHAMIDE
     Indication: Drug therapy
     Route: 065
     Dates: start: 2022

REACTIONS (3)
  - Staphylococcal sepsis [Recovered/Resolved]
  - Pneumonia fungal [Recovered/Resolved]
  - Staphylococcal infection [Recovered/Resolved]

NARRATIVE: CASE EVENT DATE: 20220101
